FAERS Safety Report 6648412-X (Version None)
Quarter: 2010Q1

REPORT INFORMATION
  Report Type: 
  Country: None (occurrence: None)
  Receive Date: 20100319
  Receipt Date: 20100309
  Transmission Date: 20100710
  Serious: Yes (Other)
  Sender: FDA-Public Use
  Company Number: 2010SP014925

PATIENT
  Age: 33 Year
  Sex: Female
  Weight: 97.5234 kg

DRUGS (3)
  1. IMPLANON [Suspect]
     Indication: DRUG USE FOR UNKNOWN INDICATION
     Dosage: 1 DF
     Dates: start: 20070511
  2. CELEXA [Concomitant]
  3. BIPOLAR MEDICATION [Concomitant]

REACTIONS (2)
  - DRUG WITHDRAWAL CONVULSIONS [None]
  - HEADACHE [None]
